FAERS Safety Report 26005528 (Version 1)
Quarter: 2025Q4

REPORT INFORMATION
  Report Type: Spontaneous
  Country: EU (occurrence: EU)
  Receive Date: 20251106
  Receipt Date: 20251106
  Transmission Date: 20260118
  Serious: Yes (Death)
  Sender: ACCORD
  Company Number: None

PATIENT
  Age: 52 Year
  Sex: Male
  Weight: 75 kg

DRUGS (1)
  1. QUETIAPINE [Suspect]
     Active Substance: QUETIAPINE
     Indication: Insomnia
     Dosage: 1 TIME PER DAY
     Dates: start: 20250310

REACTIONS (2)
  - Delusion [Fatal]
  - Completed suicide [Fatal]
